FAERS Safety Report 15535150 (Version 1)
Quarter: 2018Q4

REPORT INFORMATION
  Report Type: Spontaneous
  Country: US (occurrence: US)
  Receive Date: 20181022
  Receipt Date: 20181022
  Transmission Date: 20190205
  Serious: Yes (Other)
  Sender: FDA-Public Use
  Company Number: US-BEH-2018095824

PATIENT
  Age: 53 Year
  Sex: Male

DRUGS (5)
  1. FIRAZYR [Concomitant]
     Active Substance: ICATIBANT ACETATE
  2. HAEGARDA [Suspect]
     Active Substance: HUMAN C1-ESTERASE INHIBITOR
     Indication: PROPHYLAXIS
     Dosage: UNK
     Route: 058
  3. HAEGARDA [Suspect]
     Active Substance: HUMAN C1-ESTERASE INHIBITOR
     Indication: HEREDITARY ANGIOEDEMA
     Dosage: 8000 IU, EVERY 3-4 DAYS
     Route: 058
     Dates: start: 20180220
  4. EPINEPHRINE. [Concomitant]
     Active Substance: EPINEPHRINE
  5. PAXIL [Concomitant]
     Active Substance: PAROXETINE HYDROCHLORIDE

REACTIONS (1)
  - Escherichia infection [Unknown]
